FAERS Safety Report 7530591-3 (Version None)
Quarter: 2011Q2

REPORT INFORMATION
  Report Type: 
  Country: None (occurrence: None)
  Receive Date: 20110607
  Receipt Date: 20110524
  Transmission Date: 20111010
  Serious: No
  Sender: FDA-Public Use
  Company Number: US-B.I. PHARMACEUTICALS,INC./RIDGEFIELD-2011-BP-06883BP

PATIENT
  Age: 81 Year
  Sex: Female

DRUGS (11)
  1. AMIODARONE HCL [Concomitant]
     Dosage: 200 MG
  2. PRADAXA [Suspect]
     Indication: ATRIAL FIBRILLATION
     Route: 048
     Dates: start: 20110201
  3. VYTORIN [Concomitant]
  4. DIOVAN [Concomitant]
  5. PANTOPRAZOLE [Concomitant]
     Dosage: 40 MG
  6. OMEGA [Concomitant]
  7. ASPIRIN [Concomitant]
     Dosage: 81 MG
  8. METOPROLOL TARTRATE [Concomitant]
     Dosage: 50 MG
  9. PLAVIX [Concomitant]
     Dosage: 75 MG
  10. ALLOPURINOL [Concomitant]
     Dosage: 300 MG
  11. CENTRUM SILVER [Concomitant]

REACTIONS (5)
  - HAEMATOCHEZIA [None]
  - NIGHT SWEATS [None]
  - DIZZINESS [None]
  - ASTHENIA [None]
  - INSOMNIA [None]
